FAERS Safety Report 16719940 (Version 1)
Quarter: 2019Q3

REPORT INFORMATION
  Report Type: Spontaneous
  Country: US (occurrence: US)
  Receive Date: 20190820
  Receipt Date: 20190820
  Transmission Date: 20191005
  Serious: No
  Sender: FDA-Public Use
  Company Number: US-PFIZER INC-2019352621

PATIENT
  Age: 83 Year
  Sex: Female

DRUGS (1)
  1. ESTRING [Suspect]
     Active Substance: ESTRADIOL
     Indication: GENITAL RASH
     Dosage: UNK (INSERTED IN ME 2 WEEKS AGO)

REACTIONS (3)
  - Drug effective for unapproved indication [Unknown]
  - Asthenia [Unknown]
  - Off label use [Unknown]
